FAERS Safety Report 5883717-1 (Version None)
Quarter: 2008Q3

REPORT INFORMATION
  Report Type: 
  Country: None (occurrence: None)
  Receive Date: 20080911
  Receipt Date: 20080828
  Transmission Date: 20090109
  Serious: Yes (Other)
  Sender: FDA-Public Use
  Company Number: 8036554

PATIENT
  Age: 53 Year
  Sex: Female

DRUGS (8)
  1. LORTAB [Suspect]
     Dates: end: 20080809
  2. GABAPENTIN [Suspect]
     Indication: NEURALGIA
     Dates: start: 20070101, end: 20080809
  3. LYRICA [Suspect]
     Indication: NEURALGIA
     Dates: start: 20080601, end: 20080701
  4. LYRICA [Suspect]
     Indication: NEURALGIA
     Dosage: 150 MG 3/D
     Dates: start: 20080701, end: 20080101
  5. POTASSIUM CHLORIDE [Suspect]
     Dosage: 40 MG/D PO
     Route: 048
     Dates: end: 20080809
  6. FUROSEMIDE [Suspect]
     Dosage: 40 MG/ D PO
     Route: 048
     Dates: end: 20080809
  7. FUROSEMIDE [Suspect]
     Dosage: 40 MG 2/D PO
     Route: 047
     Dates: start: 20080101, end: 20080809
  8. DARVOCET [Suspect]
     Dates: end: 20080809

REACTIONS (13)
  - COORDINATION ABNORMAL [None]
  - DISORIENTATION [None]
  - DRUG INEFFECTIVE [None]
  - DYSURIA [None]
  - FEELING DRUNK [None]
  - GAIT DISTURBANCE [None]
  - INCONTINENCE [None]
  - NERVE INJURY [None]
  - OEDEMA PERIPHERAL [None]
  - ROAD TRAFFIC ACCIDENT [None]
  - SKIN TIGHTNESS [None]
  - SWELLING [None]
  - WEIGHT INCREASED [None]
